FAERS Safety Report 13861453 (Version 2)
Quarter: 2017Q3

REPORT INFORMATION
  Report Type: Spontaneous
  Country: FR (occurrence: FR)
  Receive Date: 20170811
  Receipt Date: 20170823
  Transmission Date: 20171127
  Serious: Yes (Hospitalization)
  Sender: FDA-Public Use
  Company Number: FR-SA-2017SA145284

PATIENT
  Age: 69 Year
  Sex: Male

DRUGS (18)
  1. RASILEZ [Concomitant]
     Active Substance: ALISKIREN
  2. XULTOPHY 100/3.6 [Suspect]
     Active Substance: INSULIN DEGLUDEC\LIRAGLUTIDE
     Indication: TYPE 2 DIABETES MELLITUS
     Route: 058
     Dates: start: 20170208, end: 20170303
  3. INEXIUM [Concomitant]
     Active Substance: ESOMEPRAZOLE
  4. DUOPLAVIN [Concomitant]
     Active Substance: ASPIRIN\CLOPIDOGREL
  5. EZETIMIBE. [Concomitant]
     Active Substance: EZETIMIBE
  6. LEVOTHYROX [Concomitant]
     Active Substance: LEVOTHYROXINE
  7. SPIRONOLACTONE. [Concomitant]
     Active Substance: SPIRONOLACTONE
  8. AMLOR [Concomitant]
     Active Substance: AMLODIPINE BESYLATE
  9. BYDUREON [Suspect]
     Active Substance: EXENATIDE
     Indication: TYPE 2 DIABETES MELLITUS
     Route: 058
     Dates: start: 20150917, end: 20160331
  10. LODOZ [Concomitant]
     Active Substance: BISOPROLOL FUMARATE\HYDROCHLOROTHIAZIDE
  11. DIAMICRON [Concomitant]
     Active Substance: GLICLAZIDE
  12. APIDRA [Suspect]
     Active Substance: INSULIN GLULISINE
     Indication: TYPE 2 DIABETES MELLITUS
     Route: 058
     Dates: start: 20150311
  13. TRULICITY [Suspect]
     Active Substance: DULAGLUTIDE
     Indication: TYPE 2 DIABETES MELLITUS
     Route: 058
     Dates: start: 20160507, end: 20170208
  14. RASILEZ [Concomitant]
     Active Substance: ALISKIREN
  15. METFORMIN [Concomitant]
     Active Substance: METFORMIN HYDROCHLORIDE
  16. LANTUS [Suspect]
     Active Substance: INSULIN GLARGINE
     Indication: TYPE 2 DIABETES MELLITUS
     Route: 058
     Dates: start: 20120629, end: 20170208
  17. VICTOZA [Suspect]
     Active Substance: LIRAGLUTIDE
     Indication: TYPE 2 DIABETES MELLITUS
     Route: 058
     Dates: start: 20111129, end: 20150311
  18. CRESTOR [Concomitant]
     Active Substance: ROSUVASTATIN CALCIUM

REACTIONS (3)
  - Lipase increased [Recovered/Resolved]
  - Hepatitis acute [Recovered/Resolved]
  - Pancreatic carcinoma [Not Recovered/Not Resolved]

NARRATIVE: CASE EVENT DATE: 20170301
